FAERS Safety Report 5326583-5 (Version None)
Quarter: 2007Q2

REPORT INFORMATION
  Report Type: 
  Country: None (occurrence: None)
  Receive Date: 20070516
  Receipt Date: 20070504
  Transmission Date: 20071010
  Serious: Yes (Other)
  Sender: FDA-Public Use
  Company Number: US-PFIZER INC-2005167896

PATIENT
  Sex: Male
  Weight: 99.8 kg

DRUGS (4)
  1. VIAGRA [Suspect]
     Indication: ERECTILE DYSFUNCTION
     Dates: start: 20020101, end: 20030501
  2. ADVIL [Concomitant]
     Dates: start: 20000101
  3. VITAMIN CAP [Concomitant]
  4. CHONDROITIN/GLUCOSAMINE [Concomitant]
     Dates: start: 20000101

REACTIONS (2)
  - BLINDNESS UNILATERAL [None]
  - ISCHAEMIA [None]
